FAERS Safety Report 5527304-3 (Version None)
Quarter: 2007Q4

REPORT INFORMATION
  Report Type: 
  Country: None (occurrence: None)
  Receive Date: 20071128
  Receipt Date: 20071119
  Transmission Date: 20080405
  Serious: Yes (Other)
  Sender: FDA-Public Use
  Company Number: B0492119A

PATIENT
  Age: 56 Year
  Sex: Female

DRUGS (2)
  1. REQUIP [Suspect]
     Indication: PARKINSON'S DISEASE
     Dosage: 5MG THREE TIMES PER DAY
     Dates: start: 20060101, end: 20070801
  2. AROPAX [Concomitant]
     Route: 048
     Dates: start: 20040920

REACTIONS (2)
  - INCREASED APPETITE [None]
  - PATHOLOGICAL GAMBLING [None]
